FAERS Safety Report 8989276 (Version 6)
Quarter: 2014Q1

REPORT INFORMATION
  Report Type: Spontaneous
  Country: US (occurrence: US)
  Receive Date: 20121227
  Receipt Date: 20140130
  Transmission Date: 20141002
  Serious: Yes (Hospitalization, Other)
  Sender: FDA-Public Use
  Company Number: US-MERCK-1212USA009168

PATIENT
  Sex: Female
  Weight: 79.37 kg

DRUGS (8)
  1. FOSAMAX [Suspect]
     Indication: OSTEOPOROSIS
     Dosage: 70 MG, QW
     Route: 048
     Dates: start: 20031103, end: 20110726
  2. FOSAMAX [Suspect]
     Indication: OSTEOPOROSIS
     Dosage: UNK
     Route: 048
     Dates: start: 200812, end: 200912
  3. ALENDRONATE SODIUM [Suspect]
     Indication: OSTEOPOROSIS
     Dosage: 70 MG, UNK
     Route: 048
     Dates: end: 20111230
  4. CALCIUM (UNSPECIFIED) [Concomitant]
     Indication: OSTEOPOROSIS
  5. CALCIUM (UNSPECIFIED) [Concomitant]
     Indication: OSTEOPENIA
  6. VITAMIN D (UNSPECIFIED) [Concomitant]
     Indication: OSTEOPOROSIS
  7. VITAMIN D (UNSPECIFIED) [Concomitant]
     Indication: OSTEOPENIA
  8. BONIVA [Concomitant]
     Indication: OSTEOPOROSIS
     Dosage: 150 MG, UNK
     Dates: start: 20051110, end: 200512

REACTIONS (23)
  - Femur fracture [Unknown]
  - Intramedullary rod insertion [Unknown]
  - Femur fracture [Unknown]
  - Femur fracture [Unknown]
  - Intramedullary rod insertion [Unknown]
  - Breast reconstruction [Unknown]
  - Cholecystectomy [Unknown]
  - Foot fracture [Unknown]
  - Hypothyroidism [Unknown]
  - Hypertonic bladder [Unknown]
  - Herpes virus infection [Unknown]
  - Osteoarthritis [Unknown]
  - Hypercholesterolaemia [Unknown]
  - Foot fracture [Unknown]
  - Foot fracture [Unknown]
  - Macular degeneration [Unknown]
  - Sleep apnoea syndrome [Unknown]
  - Thyroid disorder [Unknown]
  - Tonsillectomy [Unknown]
  - Spinal osteoarthritis [Unknown]
  - Bursitis [Unknown]
  - Drug ineffective [Unknown]
  - Pain in extremity [Unknown]
